FAERS Safety Report 5927193-9 (Version None)
Quarter: 2008Q4

REPORT INFORMATION
  Report Type: 
  Country: None (occurrence: None)
  Receive Date: 20081022
  Receipt Date: 20081015
  Transmission Date: 20090506
  Serious: Yes (Hospitalization)
  Sender: FDA-Public Use
  Company Number: US-GILEAD-2008-0018580

PATIENT
  Sex: Male
  Weight: 45.4 kg

DRUGS (7)
  1. TRUVADA [Suspect]
     Indication: HIV INFECTION
     Route: 048
     Dates: end: 20081015
  2. ATAZANAVIR SULFATE [Concomitant]
     Indication: HIV INFECTION
     Dates: end: 20081015
  3. RITONAVIR [Concomitant]
     Indication: HIV INFECTION
     Dates: end: 20081015
  4. ALEVE [Concomitant]
     Indication: PAIN
     Dates: end: 20081015
  5. NEURONTIN [Concomitant]
     Indication: PAIN
  6. NEURONTIN [Concomitant]
     Indication: NEUROPATHY PERIPHERAL
  7. PERCOCET [Concomitant]
     Indication: PAIN

REACTIONS (2)
  - BONE DISORDER [None]
  - FANCONI SYNDROME ACQUIRED [None]
